FAERS Safety Report 18710038 (Version 2)
Quarter: 2021Q3

REPORT INFORMATION
  Report Type: Other
  Country: CA (occurrence: CA)
  Receive Date: 20210107
  Receipt Date: 20210820
  Transmission Date: 20211014
  Serious: Yes (Life-Threatening)
  Sender: FDA-Public Use
  Company Number: CA-CELLTRION INC.-2021CA000017

PATIENT

DRUGS (16)
  1. PREDNISONE. [Suspect]
     Active Substance: PREDNISONE
     Indication: NON-HODGKIN^S LYMPHOMA
     Route: 042
  2. PROCYTOX [Suspect]
     Active Substance: CYCLOPHOSPHAMIDE
     Indication: NON-HODGKIN^S LYMPHOMA
     Route: 042
  3. GABAPENTIN. [Concomitant]
     Active Substance: GABAPENTIN
  4. OLANZAPINE. [Suspect]
     Active Substance: OLANZAPINE
     Indication: PRODUCT USED FOR UNKNOWN INDICATION
     Route: 065
  5. BISOPROLOL [Concomitant]
     Active Substance: BISOPROLOL
  6. DILANTIN [Concomitant]
     Active Substance: PHENYTOIN
  7. CYCLOPHOSPHAMIDE. [Suspect]
     Active Substance: CYCLOPHOSPHAMIDE
     Indication: NON-HODGKIN^S LYMPHOMA
     Route: 042
  8. RITUXIMAB (UNKNOWN) [Suspect]
     Active Substance: RITUXIMAB
     Indication: NON-HODGKIN^S LYMPHOMA
     Route: 042
  9. CIPRALEX [Concomitant]
     Active Substance: ESCITALOPRAM OXALATE
  10. GLYCOPYRRONIUM BROMIDE [Concomitant]
     Active Substance: GLYCOPYRROLATE
  11. INDACATEROL MALEATE [Concomitant]
     Active Substance: INDACATEROL MALEATE
  12. LORAZEPAM. [Concomitant]
     Active Substance: LORAZEPAM
  13. DOXORUBICIN HYDROCHLORIDE. [Suspect]
     Active Substance: DOXORUBICIN HYDROCHLORIDE
     Indication: NON-HODGKIN^S LYMPHOMA
     Route: 042
  14. VINCRISTINE SULFATE. [Suspect]
     Active Substance: VINCRISTINE SULFATE
     Indication: NON-HODGKIN^S LYMPHOMA
     Route: 042
  15. ASA [Concomitant]
     Active Substance: ASPIRIN
     Route: 065
  16. VENTOLIN [Concomitant]
     Active Substance: ALBUTEROL SULFATE

REACTIONS (13)
  - Second primary malignancy [Unknown]
  - Gastrointestinal disorder [Unknown]
  - Pneumonia [Unknown]
  - Septic shock [Unknown]
  - Chronic obstructive pulmonary disease [Unknown]
  - Lung neoplasm malignant [Unknown]
  - Paranoia [Unknown]
  - Seizure [Unknown]
  - Depression [Unknown]
  - Dizziness [Unknown]
  - Brain injury [Unknown]
  - Coma [Unknown]
  - Respiratory failure [Unknown]
